FAERS Safety Report 6582487-1 (Version None)
Quarter: 2010Q1

REPORT INFORMATION
  Report Type: 
  Country: None (occurrence: None)
  Receive Date: 20100216
  Receipt Date: 20100211
  Transmission Date: 20100710
  Serious: Yes (Death)
  Sender: FDA-Public Use
  Company Number: PHHY2010IN07629

PATIENT
  Age: 70 Year
  Sex: Male

DRUGS (1)
  1. AFINITOR [Suspect]
     Indication: GASTROINTESTINAL STROMAL TUMOUR
     Dosage: 10 MG, UNK

REACTIONS (2)
  - ASTHENIA [None]
  - DEATH [None]
